FAERS Safety Report 10449546 (Version 1)
Quarter: 2014Q3

REPORT INFORMATION
  Report Type: Spontaneous
  Country: IN (occurrence: IN)
  Receive Date: 20140912
  Receipt Date: 20140912
  Transmission Date: 20150326
  Serious: Yes (Hospitalization, Other)
  Sender: FDA-Public Use
  Company Number: IN-PAR PHARMACEUTICAL, INC-2014SCPR009383

PATIENT

DRUGS (2)
  1. RIFAMPICIN [Suspect]
     Active Substance: RIFAMPIN
     Indication: BRUCELLOSIS
     Dosage: UNK, UNKNOWN
     Route: 065
  2. DOXYCYCLINE. [Suspect]
     Active Substance: DOXYCYCLINE
     Indication: BRUCELLOSIS
     Dosage: UNK UNK, UNKNOWN
     Route: 065

REACTIONS (5)
  - Pulmonary hypertension [Recovering/Resolving]
  - Drug ineffective [Unknown]
  - Left ventricular dysfunction [Recovering/Resolving]
  - Endocarditis bacterial [Recovering/Resolving]
  - Cardiogenic shock [Recovering/Resolving]
